FAERS Safety Report 9647354 (Version 2)
Quarter: 2014Q2

REPORT INFORMATION
  Report Type: Spontaneous
  Country: US (occurrence: US)
  Receive Date: 20131027
  Receipt Date: 20140418
  Transmission Date: 20141212
  Serious: No
  Sender: FDA-Public Use
  Company Number: US-PURDUE-USA-2013-0107373

PATIENT
  Sex: Female

DRUGS (5)
  1. OXYCONTIN (NDA 22-272) [Suspect]
     Indication: PAIN
     Dosage: 30 MG, BID
     Route: 048
     Dates: start: 201008, end: 201308
  2. BUTRANS [Suspect]
     Indication: PAIN
     Dosage: 20 MCG/HR, WEEKLY
     Route: 062
     Dates: start: 20131004
  3. PERCOCET                           /00867901/ [Suspect]
     Indication: PAIN
     Dosage: 10-325 MG FOUR TIMES DAILY
     Dates: start: 201309
  4. PERCOCET                           /00867901/ [Suspect]
     Dosage: UNK
  5. PERCOCET                           /00867901/ [Suspect]
     Dosage: HALF TABLET OF 10-325 MG FOUR TIMES A DAY

REACTIONS (7)
  - Drug withdrawal syndrome [Not Recovered/Not Resolved]
  - Hyperventilation [Unknown]
  - Tremor [Unknown]
  - Dyspnoea [Not Recovered/Not Resolved]
  - Drug ineffective [Not Recovered/Not Resolved]
  - Intentional product misuse [Unknown]
  - Constipation [Unknown]
